FAERS Safety Report 6594693-0 (Version None)
Quarter: 2010Q1

REPORT INFORMATION
  Report Type: 
  Country: None (occurrence: None)
  Receive Date: 20100222
  Receipt Date: 20100212
  Transmission Date: 20100710
  Serious: Yes (Other)
  Sender: FDA-Public Use
  Company Number: US-SANOFI-AVENTIS-2010SA009522

PATIENT
  Age: 78 Year
  Sex: Female
  Weight: 61.22 kg

DRUGS (19)
  1. PLAVIX [Suspect]
     Route: 048
     Dates: start: 20060101, end: 20090922
  2. ISOSORBIDE DINITRATE [Concomitant]
     Route: 048
  3. FERROUS SULFATE TAB [Concomitant]
     Route: 048
  4. ASPIRIN [Concomitant]
     Route: 048
     Dates: end: 20091001
  5. ASPIRIN [Concomitant]
     Route: 048
     Dates: start: 20091001
  6. SIMVASTATIN [Concomitant]
     Route: 048
     Dates: end: 20091001
  7. SIMVASTATIN [Concomitant]
     Dosage: 1/2 TABLET
     Route: 048
     Dates: start: 20091001
  8. NITROGLYCERIN [Concomitant]
     Route: 060
  9. LISINOPRIL [Concomitant]
     Route: 048
  10. WARFARIN SODIUM [Concomitant]
     Dosage: DOSE ADJUSTED WITH LAST INTERNATIONAL NORMALIZED RATIO (INR)
     Route: 048
     Dates: start: 20091001
  11. CARVEDILOL [Concomitant]
     Route: 048
  12. POTASSIUM [Concomitant]
     Route: 048
  13. MULTI-VITAMINS [Concomitant]
     Route: 048
  14. VITAMIN B-12 [Concomitant]
     Route: 048
  15. LASIX [Concomitant]
     Route: 048
  16. TRAZODONE [Concomitant]
     Route: 048
  17. TYLENOL-500 [Concomitant]
     Indication: HEADACHE
     Route: 048
  18. TYLENOL-500 [Concomitant]
     Indication: ARTHRITIS
     Route: 048
  19. FAMOTIDINE [Concomitant]
     Route: 048

REACTIONS (2)
  - CARDIAC VALVE DISEASE [None]
  - CORONARY ARTERY OCCLUSION [None]
